FAERS Safety Report 4350980-8 (Version None)
Quarter: 2004Q2

REPORT INFORMATION
  Report Type: 
  Country: None (occurrence: None)
  Receive Date: 20040430
  Receipt Date: 20040422
  Transmission Date: 20050107
  Serious: Yes (Other)
  Sender: FDA-Public Use
  Company Number: HU-ROCHE-365316

PATIENT
  Age: 55 Year
  Sex: Female
  Weight: 54 kg

DRUGS (2)
  1. CAPECITABINE [Suspect]
     Dosage: 1000 MG/M2 ADMINISTERED AS TWICE DAILY OUT PATIENT INTERMITTENT TREATMENT CONSISTING OF 2 WEEKS TRE+
     Route: 048
     Dates: start: 20040120, end: 20040414
  2. OXALIPLATIN [Suspect]
     Dosage: 130 MG/M2 ON DAY ONE EVERY THREE WEEKS
     Route: 042
     Dates: start: 20040120, end: 20040414

REACTIONS (1)
  - HEPATIC LESION [None]
